FAERS Safety Report 4576969-1 (Version None)
Quarter: 2005Q1

REPORT INFORMATION
  Report Type: 
  Country: None (occurrence: None)
  Receive Date: 20050208
  Receipt Date: 20050121
  Transmission Date: 20050727
  Serious: Yes (Other)
  Sender: FDA-Public Use
  Company Number: 050005

PATIENT
  Sex: Male

DRUGS (2)
  1. POLYETHYLENE GLYCOL 3350 [Suspect]
     Indication: CONSTIPATION
  2. BIPOLAR MEDICATION [Concomitant]

REACTIONS (2)
  - BIPOLAR DISORDER [None]
  - SUICIDE ATTEMPT [None]
